FAERS Safety Report 14093400 (Version 2)
Quarter: 2017Q4

REPORT INFORMATION
  Report Type: Report from Study
  Country: GB (occurrence: GB)
  Receive Date: 20171016
  Receipt Date: 20171030
  Transmission Date: 20180321
  Serious: Yes (Other)
  Sender: FDA-Public Use
  Company Number: GB-ROCHE-2004099

PATIENT
  Sex: Female

DRUGS (1)
  1. ROACTEMRA [Suspect]
     Active Substance: TOCILIZUMAB
     Indication: RHEUMATOID ARTHRITIS
     Route: 058
     Dates: start: 20170720

REACTIONS (6)
  - Arterial injury [Unknown]
  - Arterial rupture [Unknown]
  - Impaired healing [Unknown]
  - Arterial haemorrhage [Unknown]
  - Limb injury [Unknown]
  - Accident [Unknown]
